FAERS Safety Report 24795976 (Version 2)
Quarter: 2025Q1

REPORT INFORMATION
  Report Type: Report from Study
  Country: US (occurrence: US)
  Receive Date: 20250101
  Receipt Date: 20250103
  Transmission Date: 20250409
  Serious: Yes (Death, Other)
  Sender: TAKEDA
  Company Number: US-TAKEDA-2024TUS060322

PATIENT
  Sex: Female

DRUGS (14)
  1. PONATINIB [Suspect]
     Active Substance: PONATINIB
     Indication: Anaemia
     Dosage: 30 MILLIGRAM, QD
  2. PONATINIB [Suspect]
     Active Substance: PONATINIB
     Indication: Chronic kidney disease
     Dosage: 30 MILLIGRAM, QD
  3. ALLOPURINOL [Concomitant]
     Active Substance: ALLOPURINOL
  4. TRULICITY [Concomitant]
     Active Substance: DULAGLUTIDE
  5. GABAPENTIN [Concomitant]
     Active Substance: GABAPENTIN
  6. SPIRONOLACTONE [Concomitant]
     Active Substance: SPIRONOLACTONE
  7. LEVOTHYROXINE SODIUM [Concomitant]
     Active Substance: LEVOTHYROXINE SODIUM
  8. METFORMIN HYDROCHLORIDE [Concomitant]
     Active Substance: METFORMIN HYDROCHLORIDE
  9. FUROSEMIDE [Concomitant]
     Active Substance: FUROSEMIDE
  10. LORATADINE [Concomitant]
     Active Substance: LORATADINE
  11. GLIMEPIRIDE [Concomitant]
     Active Substance: GLIMEPIRIDE
  12. BACLOFEN [Concomitant]
     Active Substance: BACLOFEN
  13. URSODIOL [Concomitant]
     Active Substance: URSODIOL
  14. PAROXETINE [Concomitant]
     Active Substance: PAROXETINE

REACTIONS (7)
  - Death [Fatal]
  - Blood glucose increased [Unknown]
  - Dry skin [Unknown]
  - Product use in unapproved indication [Unknown]
  - Off label use [Unknown]
  - Product dose omission issue [Unknown]
  - Constipation [Unknown]
